FAERS Safety Report 6518170-8 (Version None)
Quarter: 2009Q4

REPORT INFORMATION
  Report Type: 
  Country: None (occurrence: None)
  Receive Date: 20091218
  Receipt Date: 20091118
  Transmission Date: 20100525
  Serious: Yes (Hospitalization)
  Sender: FDA-Public Use
  Company Number: JP-2009-2476

PATIENT
  Age: 46 Year
  Sex: Female

DRUGS (2)
  1. NAVELBINE [Suspect]
     Indication: LUNG NEOPLASM MALIGNANT
     Dosage: 20 MG/M2 IV
     Route: 042
     Dates: start: 20051201, end: 20060201
  2. CISPLATIN [Concomitant]

REACTIONS (6)
  - COLITIS ULCERATIVE [None]
  - GENERAL PHYSICAL HEALTH DETERIORATION [None]
  - HAEMATOCHEZIA [None]
  - NO THERAPEUTIC RESPONSE [None]
  - PSEUDOPOLYPOSIS [None]
  - PYREXIA [None]
